FAERS Safety Report 18245439 (Version 2)
Quarter: 2021Q1

REPORT INFORMATION
  Report Type: Spontaneous
  Country: FR (occurrence: FR)
  Receive Date: 20200908
  Receipt Date: 20210105
  Transmission Date: 20210419
  Serious: Yes (Hospitalization, Other)
  Sender: FDA-Public Use
  Company Number: FR-ABBVIE-20K-056-3552446-00

PATIENT
  Age: 16 Year
  Sex: Male
  Weight: 39 kg

DRUGS (31)
  1. TOPOTECAN [Suspect]
     Active Substance: TOPOTECAN HYDROCHLORIDE
     Dosage: 0.75 MG/M2 (GIVEN FOR 4 DAYS EVERY 21 DAYS)
     Route: 042
     Dates: start: 20200806
  2. FILGRASTIM [Concomitant]
     Active Substance: FILGRASTIM
     Indication: GROWTH DISORDER
     Dosage: (30 MIU/L) ON DAY 7 OF EACH COURSE AND CONTINUE UNTIL APLASIA OVER)
     Route: 065
     Dates: start: 20200129
  3. TOPOTECAN [Suspect]
     Active Substance: TOPOTECAN HYDROCHLORIDE
     Dosage: 0.75 MG/M2, QD
     Route: 042
     Dates: start: 20200214, end: 20200218
  4. CYCLOPHOSPHAMIDE. [Suspect]
     Active Substance: CYCLOPHOSPHAMIDE
     Dosage: 250 MG/M2
     Route: 042
     Dates: start: 20200214, end: 20200218
  5. NIVESTIM [Concomitant]
     Active Substance: FILGRASTIM
     Indication: PROPHYLAXIS
     Route: 042
     Dates: start: 20200129
  6. FORLAX [Concomitant]
     Active Substance: POLYETHYLENE GLYCOL 4000
     Indication: CONSTIPATION
     Dosage: UNK (10 OR 20 MG (2 IN 1 D)
     Route: 048
     Dates: start: 20200122
  7. TOPOTECAN [Suspect]
     Active Substance: TOPOTECAN HYDROCHLORIDE
     Indication: NEOPLASM MALIGNANT
     Dosage: 0.75 MG/M2, QD
     Route: 042
     Dates: start: 20200420, end: 20200424
  8. TOPOTECAN [Suspect]
     Active Substance: TOPOTECAN HYDROCHLORIDE
     Dosage: 0.75 MG/M2, QD
     Route: 042
     Dates: start: 20200330, end: 20200403
  9. TOPOTECAN [Suspect]
     Active Substance: TOPOTECAN HYDROCHLORIDE
     Dosage: 0.75 MG/M2, QD
     Route: 042
     Dates: start: 20200306, end: 20200310
  10. CYCLOPHOSPHAMIDE. [Suspect]
     Active Substance: CYCLOPHOSPHAMIDE
     Indication: NEOPLASM MALIGNANT
     Dosage: 250 MG/M2, QD
     Route: 042
     Dates: start: 20200124, end: 20200128
  11. CYCLOPHOSPHAMIDE. [Suspect]
     Active Substance: CYCLOPHOSPHAMIDE
     Dosage: 250 MG/M2 (GIVEN FOR 4 DAYS EVERY 21 DAYS)
     Route: 042
     Dates: start: 20200608
  12. SKENAN [Concomitant]
     Active Substance: MORPHINE SULFATE
     Indication: PELVIC NEOPLASM
     Dosage: 30 MG, QD
     Route: 048
     Dates: start: 20200126
  13. TOPOTECAN [Suspect]
     Active Substance: TOPOTECAN HYDROCHLORIDE
     Dosage: 0.75 MG/M2, QD
     Route: 042
     Dates: start: 20200124, end: 20200128
  14. PENTACARINAT [Concomitant]
     Active Substance: PENTAMIDINE ISETHIONATE
     Indication: NEURALGIA
     Dosage: 300 MG (1 IN 1 DAY)
     Route: 042
     Dates: start: 20200129
  15. DULOXETINE. [Concomitant]
     Active Substance: DULOXETINE
     Indication: NEURALGIA
     Dosage: 30 MG, QD
     Route: 048
     Dates: start: 20200121
  16. CYMBALTA [Concomitant]
     Active Substance: DULOXETINE HYDROCHLORIDE
     Indication: NEURALGIA
     Dosage: 30 MG, QD
     Route: 048
     Dates: start: 20200121
  17. VENETOCLAX. [Suspect]
     Active Substance: VENETOCLAX
     Dosage: 120 MG, QD (1 IN 1 D)
     Route: 048
     Dates: start: 20200123
  18. TOPOTECAN [Suspect]
     Active Substance: TOPOTECAN HYDROCHLORIDE
     Dosage: 0.71 MG, QD
     Route: 042
     Dates: start: 20200518, end: 20200522
  19. CYCLOPHOSPHAMIDE. [Suspect]
     Active Substance: CYCLOPHOSPHAMIDE
     Dosage: 230 MG, QD
     Route: 042
     Dates: start: 20200518, end: 20200522
  20. CYCLOPHOSPHAMIDE. [Suspect]
     Active Substance: CYCLOPHOSPHAMIDE
     Dosage: 250 MG/M2, QD
     Route: 042
     Dates: start: 20200420, end: 20200424
  21. VENETOCLAX. [Suspect]
     Active Substance: VENETOCLAX
     Indication: NEOPLASM MALIGNANT
     Dosage: 120 MG, QD (1 IN 1 D)
     Route: 048
     Dates: start: 20200122, end: 20200122
  22. CYCLOPHOSPHAMIDE. [Suspect]
     Active Substance: CYCLOPHOSPHAMIDE
     Dosage: 250 MG/M2
     Route: 042
     Dates: start: 20200306, end: 20200310
  23. CYCLOPHOSPHAMIDE. [Suspect]
     Active Substance: CYCLOPHOSPHAMIDE
     Dosage: 250 MG/M2
     Route: 042
     Dates: start: 20200330, end: 20200403
  24. PENTACARINAT [Concomitant]
     Active Substance: PENTAMIDINE ISETHIONATE
     Indication: PROPHYLAXIS
     Dosage: 600 MG (300 MG, 2 IN 1 DAY)
     Route: 048
     Dates: start: 20200121
  25. GLUCOSE [Concomitant]
     Active Substance: DEXTROSE
     Indication: PROPHYLAXIS
     Dosage: UNK
     Route: 042
     Dates: start: 20200121, end: 20200130
  26. HYDROCORTISONE. [Concomitant]
     Active Substance: HYDROCORTISONE
     Indication: SCIATICA
  27. PANTOPRAZOLE [Concomitant]
     Active Substance: PANTOPRAZOLE
     Indication: PROPHYLAXIS
     Dosage: 20 MG, QD
     Route: 048
     Dates: start: 20200121
  28. PREGABALINE [Concomitant]
     Active Substance: PREGABALIN
     Indication: NEURALGIA
     Dosage: 600 MG (300 MG, 2 IN 1 D)
     Route: 048
     Dates: start: 20200121
  29. HYDROCORTISONE. [Concomitant]
     Active Substance: HYDROCORTISONE
     Indication: ADRENOCORTICOTROPIC HORMONE DEFICIENCY
     Dosage: UNK (7.5 MG MORNING AND 5MG AT 12 (2 IN 1 D))
     Route: 065
     Dates: start: 20200223
  30. LYRICA [Concomitant]
     Active Substance: PREGABALIN
     Indication: NEURALGIA
     Dosage: 600 MG (300 MG (2 IN 1 D))
     Route: 048
     Dates: start: 20200121
  31. ALLOPURINOL. [Concomitant]
     Active Substance: ALLOPURINOL
     Indication: PROPHYLAXIS
     Dosage: 300 MG, QD
     Route: 065
     Dates: start: 20200121, end: 20200130

REACTIONS (7)
  - Febrile neutropenia [Recovered/Resolved]
  - Lung disorder [Recovered/Resolved]
  - Hyperthermia [Unknown]
  - Cystitis haemorrhagic [Not Recovered/Not Resolved]
  - Haematuria [Not Recovered/Not Resolved]
  - Thrombocytopenia [Not Recovered/Not Resolved]
  - Renal colic [Unknown]

NARRATIVE: CASE EVENT DATE: 2020
